FAERS Safety Report 4801198-3 (Version None)
Quarter: 2005Q4

REPORT INFORMATION
  Report Type: 
  Country: None (occurrence: None)
  Receive Date: 20051011
  Receipt Date: 20050929
  Transmission Date: 20060501
  Serious: Yes (Other)
  Sender: FDA-Public Use
  Company Number: 2005BH001511

PATIENT
  Sex: Female

DRUGS (1)
  1. DIANEAL [Suspect]
     Indication: HAEMODIALYSIS
     Dosage: 2000 ML;  IP
     Route: 033

REACTIONS (3)
  - ABDOMINAL PAIN [None]
  - DISCOMFORT [None]
  - EXCITABILITY [None]
